FAERS Safety Report 7510204-7 (Version None)
Quarter: 2011Q2

REPORT INFORMATION
  Report Type: 
  Country: None (occurrence: None)
  Receive Date: 20110527
  Receipt Date: 20110509
  Transmission Date: 20111010
  Serious: Yes (Other)
  Sender: FDA-Public Use
  Company Number: US-UCBSA-032513

PATIENT
  Sex: Female
  Weight: 77.11 kg

DRUGS (8)
  1. CIMZIA [Suspect]
     Route: 058
     Dates: start: 20110301
  2. OMEPRAZOLE [Concomitant]
     Route: 048
  3. ENTOCORT EC [Concomitant]
     Route: 048
     Dates: start: 20110301
  4. CIMZIA [Suspect]
     Indication: CROHN'S DISEASE
     Route: 058
     Dates: start: 20101005, end: 20101201
  5. VITAMIN B-12 [Concomitant]
     Route: 030
     Dates: start: 20100101
  6. LAMOTIL [Concomitant]
     Dosage: 2 PILLS 4 X DAY
     Route: 048
     Dates: start: 20110508
  7. HYDRALAZINE HCL [Concomitant]
     Dosage: 25 MG 4 TIMES A DAY AS NEEDED
     Route: 048
     Dates: start: 20110501
  8. ZOFRAN [Concomitant]
     Route: 048
     Dates: start: 20110401

REACTIONS (8)
  - DRUG INEFFECTIVE [None]
  - GASTROINTESTINAL INFECTION [None]
  - CAMPYLOBACTER TEST POSITIVE [None]
  - MUSCLE SPASMS [None]
  - INFLUENZA LIKE ILLNESS [None]
  - BLOOD POTASSIUM DECREASED [None]
  - FREQUENT BOWEL MOVEMENTS [None]
  - DEHYDRATION [None]
